FAERS Safety Report 8144879-9 (Version None)
Quarter: 2012Q1

REPORT INFORMATION
  Report Type: 
  Country: None (occurrence: None)
  Receive Date: 20120217
  Receipt Date: 20120214
  Transmission Date: 20120608
  Serious: Yes (Life-Threatening)
  Sender: FDA-Public Use
  Company Number: GB-GLAXOSMITHKLINE-B0756468A

PATIENT
  Age: 52 Year
  Sex: Male
  Weight: 99 kg

DRUGS (2)
  1. DIPROBASE [Concomitant]
     Indication: PSORIASIS
  2. MALARONE [Suspect]
     Indication: MALARIA PROPHYLAXIS
     Route: 048
     Dates: start: 20110814

REACTIONS (7)
  - ASCITES [None]
  - THROMBOCYTOPENIA [None]
  - INTERNATIONAL NORMALISED RATIO INCREASED [None]
  - ACUTE HEPATIC FAILURE [None]
  - PNEUMONIA [None]
  - OEDEMA PERIPHERAL [None]
  - RENAL FAILURE ACUTE [None]
